FAERS Safety Report 6570979-0 (Version None)
Quarter: 2010Q1

REPORT INFORMATION
  Report Type: 
  Country: None (occurrence: None)
  Receive Date: 20100204
  Receipt Date: 20100125
  Transmission Date: 20100710
  Serious: Yes (Other)
  Sender: FDA-Public Use
  Company Number: PHEH2007US15651

PATIENT
  Sex: Female

DRUGS (6)
  1. ZOMETA [Suspect]
     Dosage: UNK
     Route: 042
  2. REMICADE [Concomitant]
  3. MEGACE [Concomitant]
  4. CHEMOTHERAPEUTICS NOS [Concomitant]
  5. PERIDEX [Concomitant]
  6. KENALOG [Concomitant]

REACTIONS (14)
  - ANAEMIA [None]
  - ANXIETY [None]
  - BACK PAIN [None]
  - DEFORMITY [None]
  - EMOTIONAL DISTRESS [None]
  - GAIT DISTURBANCE [None]
  - HEPATIC NEOPLASM MALIGNANT [None]
  - INFECTION [None]
  - OSTEONECROSIS [None]
  - PAIN [None]
  - PHYSICAL DISABILITY [None]
  - PLEURAL EFFUSION [None]
  - PULMONARY MASS [None]
  - SPINAL COLUMN STENOSIS [None]
